FAERS Safety Report 23217414 (Version 3)
Quarter: 2025Q2

REPORT INFORMATION
  Report Type: Spontaneous
  Country: CA (occurrence: CA)
  Receive Date: 20231122
  Receipt Date: 20250529
  Transmission Date: 20250716
  Serious: Yes (Death, Life-Threatening, Hospitalization, Disabling, Other)
  Sender: ADVANZ PHARMA
  Company Number: CA-SA-2023SA311361

PATIENT

DRUGS (105)
  1. HYDROXYCHLOROQUINE [Suspect]
     Active Substance: HYDROXYCHLOROQUINE
     Route: 048
  2. HYDROXYCHLOROQUINE SULFATE [Suspect]
     Active Substance: HYDROXYCHLOROQUINE SULFATE
  3. QUETIAPINE FUMARATE [Suspect]
     Active Substance: QUETIAPINE FUMARATE
     Indication: Rheumatoid arthritis
  4. QUETIAPINE FUMARATE [Suspect]
     Active Substance: QUETIAPINE FUMARATE
     Indication: Product used for unknown indication
  5. ACETAMINOPHEN [Suspect]
     Active Substance: ACETAMINOPHEN
  6. DICLOFENAC POTASSIUM [Suspect]
     Active Substance: DICLOFENAC POTASSIUM
  7. PREDNISONE [Suspect]
     Active Substance: PREDNISONE
     Route: 048
  8. PREDNISONE [Suspect]
     Active Substance: PREDNISONE
     Route: 048
  9. ARAVA [Suspect]
     Active Substance: LEFLUNOMIDE
  10. CALCIUM CARBONATE [Suspect]
     Active Substance: CALCIUM CARBONATE
  11. CELEBREX [Suspect]
     Active Substance: CELECOXIB
     Route: 048
  12. CORTISONE [Suspect]
     Active Substance: CORTISONE
  13. DESOXIMETASONE [Suspect]
     Active Substance: DESOXIMETASONE
     Route: 053
  14. DICLOFENAC SODIUM [Suspect]
     Active Substance: DICLOFENAC SODIUM
  15. FOLIC ACID [Suspect]
     Active Substance: FOLIC ACID
  16. IBUPROFEN [Suspect]
     Active Substance: IBUPROFEN
  17. SULFAMETHOXAZOLE [Suspect]
     Active Substance: SULFAMETHOXAZOLE
  18. KEVZARA [Suspect]
     Active Substance: SARILUMAB
  19. PREGABALIN [Suspect]
     Active Substance: PREGABALIN
  20. RAMIPRIL [Suspect]
     Active Substance: RAMIPRIL
  21. PREDNISONE [Suspect]
     Active Substance: PREDNISONE
     Route: 048
  22. PREDNISONE [Suspect]
     Active Substance: PREDNISONE
  23. PREDNISONE [Suspect]
     Active Substance: PREDNISONE
  24. CETIRIZINE HYDROCHLORIDE [Suspect]
     Active Substance: CETIRIZINE HYDROCHLORIDE
  25. VITAMIN C [Suspect]
     Active Substance: ASCORBIC ACID
  26. ORENCIA [Suspect]
     Active Substance: ABATACEPT
     Route: 058
  27. ACTEMRA [Suspect]
     Active Substance: TOCILIZUMAB
     Route: 042
  28. ADALIMUMAB [Suspect]
     Active Substance: ADALIMUMAB
     Route: 058
  29. ALENDRONATE SODIUM\CHOLECALCIFEROL [Suspect]
     Active Substance: ALENDRONATE SODIUM\CHOLECALCIFEROL
  30. CHLORAPREP [Suspect]
     Active Substance: CHLORHEXIDINE GLUCONATE\ISOPROPYL ALCOHOL
     Route: 048
  31. CHLORHEXIDINE [Suspect]
     Active Substance: CHLORHEXIDINE
  32. CHOLECALCIFEROL [Suspect]
     Active Substance: CHOLECALCIFEROL
  33. CORTISONE ACETATE [Suspect]
     Active Substance: CORTISONE ACETATE
     Route: 048
  34. CIMZIA [Suspect]
     Active Substance: CERTOLIZUMAB PEGOL
     Route: 058
  35. CETIRIZINE HYDROCHLORIDE [Suspect]
     Active Substance: CETIRIZINE HYDROCHLORIDE
  36. COSENTYX [Suspect]
     Active Substance: SECUKINUMAB
  37. ENBREL [Suspect]
     Active Substance: ETANERCEPT
     Route: 058
  38. ETANERCEPT [Suspect]
     Active Substance: ETANERCEPT
     Route: 058
  39. FOSAMAX [Suspect]
     Active Substance: ALENDRONATE SODIUM
  40. HUMIRA [Suspect]
     Active Substance: ADALIMUMAB
     Route: 058
  41. FLUMETHASONE PIVALATE [Suspect]
     Active Substance: FLUMETHASONE PIVALATE
     Route: 058
  42. LYRICA [Suspect]
     Active Substance: PREGABALIN
  43. METHOTREXATE SODIUM [Suspect]
     Active Substance: METHOTREXATE SODIUM
     Route: 048
  44. OTEZLA [Suspect]
     Active Substance: APREMILAST
  45. HYDROXYCHLOROQUINE SULFATE [Suspect]
     Active Substance: HYDROXYCHLOROQUINE SULFATE
  46. PERIOGARD ALCOHOL FREE [Suspect]
     Active Substance: CHLORHEXIDINE GLUCONATE
     Route: 002
  47. ACETAMINOPHEN\OXYCODONE HYDROCHLORIDE [Suspect]
     Active Substance: ACETAMINOPHEN\OXYCODONE HYDROCHLORIDE
  48. PHTHALYLSULFATHIAZOLE [Suspect]
     Active Substance: PHTHALYLSULFATHIAZOLE
     Route: 002
  49. CETIRIZINE HYDROCHLORIDE\PSEUDOEPHEDRINE HYDROCHLORIDE [Suspect]
     Active Substance: CETIRIZINE HYDROCHLORIDE\PSEUDOEPHEDRINE HYDROCHLORIDE
     Route: 048
  50. INFLIXIMAB [Suspect]
     Active Substance: INFLIXIMAB
  51. REMICADE [Suspect]
     Active Substance: INFLIXIMAB
     Route: 042
  52. RITUXAN [Suspect]
     Active Substance: RITUXIMAB
     Route: 042
  53. SULFASALAZINE [Suspect]
     Active Substance: SULFASALAZINE
  54. SOLU-MEDROL [Suspect]
     Active Substance: METHYLPREDNISOLONE SODIUM SUCCINATE
  55. STELARA [Suspect]
     Active Substance: USTEKINUMAB
  56. ASCORBIC ACID [Suspect]
     Active Substance: ASCORBIC ACID
  57. VOLTAREN [Suspect]
     Active Substance: DICLOFENAC SODIUM
  58. RITUXIMAB [Suspect]
     Active Substance: RITUXIMAB
  59. SIMPONI [Suspect]
     Active Substance: GOLIMUMAB
  60. TOPICORT [Suspect]
     Active Substance: DESOXIMETASONE
  61. XELJANZ [Suspect]
     Active Substance: TOFACITINIB CITRATE
  62. CODEINE PHOSPHATE [Concomitant]
     Active Substance: CODEINE PHOSPHATE
  63. LECITHIN [Concomitant]
     Active Substance: LECITHIN
  64. GLUCOSAMINE [Concomitant]
     Active Substance: GLUCOSAMINE
  65. ETANERCEPT [Concomitant]
     Active Substance: ETANERCEPT
  66. ASPIRIN [Concomitant]
     Active Substance: ASPIRIN
  67. HYALURONIDASE (HUMAN RECOMBINANT) [Concomitant]
     Active Substance: HYALURONIDASE (HUMAN RECOMBINANT)
  68. ICOSAPENT [Concomitant]
     Active Substance: ICOSAPENT
  69. LANSOPRAZOLE [Concomitant]
     Active Substance: LANSOPRAZOLE
  70. DOCONEXENT [Concomitant]
     Active Substance: DOCONEXENT
  71. ERGOCALCIFEROL [Concomitant]
     Active Substance: ERGOCALCIFEROL
  72. ETHINYL ESTRADIOL [Concomitant]
     Active Substance: ETHINYL ESTRADIOL
  73. DESOGESTREL [Concomitant]
     Active Substance: DESOGESTREL
  74. PREDNISOLONE [Concomitant]
     Active Substance: PREDNISOLONE
  75. RISEDRONATE SODIUM [Concomitant]
     Active Substance: RISEDRONATE SODIUM
  76. DICLOFENAC POTASSIUM [Concomitant]
     Active Substance: DICLOFENAC POTASSIUM
  77. HYDROCORTISONE PROBUTATE [Concomitant]
     Active Substance: HYDROCORTISONE PROBUTATE
  78. PANTOPRAZOLE SODIUM ANHYDROUS [Concomitant]
     Active Substance: PANTOPRAZOLE SODIUM ANHYDROUS
  79. LORAZEPAM [Concomitant]
     Active Substance: LORAZEPAM
  80. PHENACETIN [Concomitant]
     Active Substance: PHENACETIN
  81. CODEINE PHOSPHATE [Concomitant]
     Active Substance: CODEINE PHOSPHATE
  82. CALCIUM GLUCONATE [Concomitant]
     Active Substance: CALCIUM GLUCONATE
  83. LEVOTHYROXINE SODIUM [Concomitant]
     Active Substance: LEVOTHYROXINE SODIUM
  84. LISINOPRIL [Concomitant]
     Active Substance: LISINOPRIL
  85. LISINOPRIL [Concomitant]
     Active Substance: LISINOPRIL
  86. MELOXICAM [Concomitant]
     Active Substance: MELOXICAM
  87. PANTOPRAZOLE SODIUM [Concomitant]
     Active Substance: PANTOPRAZOLE SODIUM
  88. ACETAMINOPHEN [Concomitant]
     Active Substance: ACETAMINOPHEN
  89. RITUXIMAB [Concomitant]
     Active Substance: RITUXIMAB
  90. DIETARY SUPPLEMENT\HERBALS [Concomitant]
     Active Substance: DIETARY SUPPLEMENT\HERBALS
  91. ASCORBIC ACID [Concomitant]
     Active Substance: ASCORBIC ACID
  92. CALCIUM [Concomitant]
     Active Substance: CALCIUM
  93. HERBALS [Concomitant]
     Active Substance: HERBALS
  94. CAFFEINE [Concomitant]
     Active Substance: CAFFEINE
  95. TEA LEAF [Concomitant]
     Active Substance: TEA LEAF
  96. HERBALS [Concomitant]
     Active Substance: HERBALS
  97. HERBALS [Concomitant]
     Active Substance: HERBALS
  98. HERBALS [Concomitant]
     Active Substance: HERBALS
  99. GINKGO [Concomitant]
     Active Substance: GINKGO
  100. OLEA EUROPAEA LEAF [Concomitant]
     Active Substance: OLEA EUROPAEA LEAF
  101. CAFFEINE CITRATE [Concomitant]
     Active Substance: CAFFEINE CITRATE
  102. MAGNESIUM [Concomitant]
     Active Substance: MAGNESIUM
  103. PIROXICAM OLAMINE [Concomitant]
     Active Substance: PIROXICAM OLAMINE
  104. CHOLECALCIFEROL [Concomitant]
     Active Substance: CHOLECALCIFEROL
  105. QUETIAPINE FUMARATE [Concomitant]
     Active Substance: QUETIAPINE FUMARATE

REACTIONS (101)
  - Abdominal discomfort [Fatal]
  - Abdominal pain upper [Fatal]
  - Anti-cyclic citrullinated peptide antibody positive [Fatal]
  - Anxiety [Fatal]
  - Arthralgia [Fatal]
  - Arthropathy [Fatal]
  - Asthenia [Fatal]
  - Asthma [Fatal]
  - Autoimmune disorder [Fatal]
  - Blister [Fatal]
  - Blood cholesterol increased [Fatal]
  - C-reactive protein [Fatal]
  - C-reactive protein abnormal [Fatal]
  - Chest pain [Fatal]
  - Condition aggravated [Fatal]
  - Confusional state [Fatal]
  - Contusion [Fatal]
  - Deep vein thrombosis postoperative [Fatal]
  - Drug hypersensitivity [Fatal]
  - Discomfort [Fatal]
  - Dry mouth [Fatal]
  - Duodenal ulcer perforation [Fatal]
  - Dyspnoea [Fatal]
  - Fibromyalgia [Fatal]
  - Folliculitis [Fatal]
  - Gait inability [Fatal]
  - Gastrointestinal disorder [Fatal]
  - General physical health deterioration [Fatal]
  - Glossodynia [Fatal]
  - Hand deformity [Fatal]
  - Helicobacter infection [Fatal]
  - Hip arthroplasty [Fatal]
  - Hypersensitivity [Fatal]
  - Hypertension [Fatal]
  - Hypoaesthesia [Fatal]
  - Ill-defined disorder [Fatal]
  - Impaired healing [Fatal]
  - Infection [Fatal]
  - Infusion related reaction [Fatal]
  - Injury [Fatal]
  - Irritable bowel syndrome [Fatal]
  - Joint swelling [Fatal]
  - Lip dry [Fatal]
  - Live birth [Fatal]
  - Liver disorder [Fatal]
  - Liver injury [Fatal]
  - Lower limb fracture [Fatal]
  - Lower respiratory tract infection [Fatal]
  - Lung disorder [Fatal]
  - Malaise [Fatal]
  - Mobility decreased [Fatal]
  - Muscle injury [Fatal]
  - Musculoskeletal pain [Fatal]
  - Musculoskeletal stiffness [Fatal]
  - Nasopharyngitis [Fatal]
  - Night sweats [Fatal]
  - Oedema [Fatal]
  - Osteoarthritis [Fatal]
  - Pain [Fatal]
  - Pemphigus [Fatal]
  - Pericarditis [Fatal]
  - Peripheral swelling [Fatal]
  - Psoriatic arthropathy [Fatal]
  - Pyrexia [Fatal]
  - Rheumatic fever [Fatal]
  - Rheumatoid arthritis [Fatal]
  - Rheumatoid factor positive [Fatal]
  - Road traffic accident [Fatal]
  - Sciatica [Fatal]
  - Sinusitis [Fatal]
  - Sleep disorder due to general medical condition, insomnia type [Fatal]
  - Stomatitis [Fatal]
  - Swelling [Fatal]
  - Swollen joint count increased [Fatal]
  - Synovitis [Fatal]
  - Systemic lupus erythematosus [Fatal]
  - Type 2 diabetes mellitus [Fatal]
  - Weight increased [Fatal]
  - Wheezing [Fatal]
  - Wound [Fatal]
  - Abdominal pain upper [Fatal]
  - Alopecia [Fatal]
  - Decreased appetite [Fatal]
  - Diarrhoea [Fatal]
  - Fatigue [Fatal]
  - Headache [Fatal]
  - Hepatic enzyme increased [Fatal]
  - Pruritus [Fatal]
  - Rash [Fatal]
  - Urticaria [Fatal]
  - Vomiting [Fatal]
  - Maternal exposure during pregnancy [Fatal]
  - Treatment failure [Fatal]
  - Off label use [Fatal]
  - Therapeutic product effect decreased [Fatal]
  - Contraindicated product administered [Fatal]
  - Drug intolerance [Fatal]
  - Therapy non-responder [Fatal]
  - Intentional product use issue [Fatal]
  - Drug ineffective [Fatal]
  - Prescribed overdose [Fatal]
